FAERS Safety Report 6561351-8 (Version None)
Quarter: 2010Q1

REPORT INFORMATION
  Report Type: 
  Country: None (occurrence: None)
  Receive Date: 20100130
  Receipt Date: 20091019
  Transmission Date: 20100710
  Serious: Yes (Other)
  Sender: FDA-Public Use
  Company Number: US-ABBOTT-09P-163-0603513-00

PATIENT
  Sex: Female
  Weight: 70.37 kg

DRUGS (6)
  1. HUMIRA [Suspect]
     Indication: RHEUMATOID ARTHRITIS
     Route: 058
     Dates: start: 20090301, end: 20090816
  2. HUMIRA [Suspect]
     Route: 058
     Dates: start: 20090921, end: 20090921
  3. LEVOXYL [Concomitant]
     Indication: GOITRE
     Route: 048
  4. PRILOSEC [Concomitant]
     Indication: GASTROOESOPHAGEAL REFLUX DISEASE
     Route: 048
  5. PRILOSEC [Concomitant]
     Indication: HIATUS HERNIA
  6. LEFLUNOMIDE [Concomitant]
     Indication: RHEUMATOID ARTHRITIS
     Route: 048

REACTIONS (4)
  - INJECTION SITE PAIN [None]
  - LYMPHOMA [None]
  - MYCOSIS FUNGOIDES [None]
  - PUSTULAR PSORIASIS [None]
